FAERS Safety Report 16128988 (Version 1)
Quarter: 2019Q1

REPORT INFORMATION
  Report Type: Spontaneous
  Country: US (occurrence: US)
  Receive Date: 20190225
  Receipt Date: 20190225
  Transmission Date: 20190418
  Serious: No
  Sender: FDA-Public Use
  Company Number: None

PATIENT
  Age: 30 Year
  Sex: Female

DRUGS (1)
  1. COPAXONE [Suspect]
     Active Substance: GLATIRAMER ACETATE
     Route: 058
     Dates: start: 201811

REACTIONS (3)
  - Injection site haemorrhage [None]
  - Injection site bruising [None]
  - Wrong technique in product usage process [None]

NARRATIVE: CASE EVENT DATE: 20190215
